FAERS Safety Report 26206983 (Version 1)
Quarter: 2025Q4

REPORT INFORMATION
  Report Type: Spontaneous
  Country: EU (occurrence: EU)
  Receive Date: 20251229
  Receipt Date: 20251229
  Transmission Date: 20260117
  Serious: Yes (Other)
  Sender: AUROBINDO
  Company Number: EU-LRB-01098457

PATIENT
  Age: 77 Year
  Sex: Female
  Weight: 63.3 kg

DRUGS (1)
  1. VALACYCLOVIR HYDROCHLORIDE [Suspect]
     Active Substance: VALACYCLOVIR HYDROCHLORIDE
     Indication: Antiviral prophylaxis
     Dosage: 500 MILLIGRAM, ONCE A DAY (1 PIECE ONCE A DAY)
     Route: 061
     Dates: start: 20250204, end: 20251030

REACTIONS (1)
  - Leukopenia [Recovered/Resolved]
